APPROVED DRUG PRODUCT: ISOPROTERENOL HYDROCHLORIDE
Active Ingredient: ISOPROTERENOL HYDROCHLORIDE
Strength: 0.2MG/ML
Dosage Form/Route: INJECTABLE;INJECTION
Application: A211738 | Product #001
Applicant: CIPLA LTD
Approved: Jun 28, 2019 | RLD: No | RS: No | Type: DISCN